FAERS Safety Report 5337097-0 (Version None)
Quarter: 2007Q2

REPORT INFORMATION
  Report Type: 
  Country: None (occurrence: None)
  Receive Date: 20070529
  Receipt Date: 20070521
  Transmission Date: 20071010
  Serious: Yes (Hospitalization)
  Sender: FDA-Public Use
  Company Number: FR-ASTRAZENECA-2007CG00796

PATIENT
  Age: 65 Year
  Sex: Female

DRUGS (2)
  1. SYMBICORT [Suspect]
     Indication: ASTHMA
     Dosage: 320/9 ?G PER DOSE, ONE INHALATION TWICE DAILY
     Route: 055
     Dates: start: 20051201
  2. ATACAND [Concomitant]
     Indication: HYPERTENSION
     Route: 048

REACTIONS (1)
  - HAEMOPTYSIS [None]
